FAERS Safety Report 18807854 (Version 1)
Quarter: 2021Q1

REPORT INFORMATION
  Report Type: Spontaneous
  Country: JP (occurrence: JP)
  Receive Date: 20210129
  Receipt Date: 20210129
  Transmission Date: 20210419
  Serious: Yes (Hospitalization, Other)
  Sender: FDA-Public Use
  Company Number: JP-PFIZER INC-2021074338

PATIENT
  Age: 47 Year
  Sex: Female
  Weight: 59 kg

DRUGS (4)
  1. LYRICA [Suspect]
     Active Substance: PREGABALIN
     Indication: POST HERPETIC NEURALGIA
     Dosage: UNK UNK, UNKNOWN FREQ.
     Route: 048
     Dates: start: 20201012, end: 20201023
  2. TEPRENONE [Concomitant]
     Active Substance: TEPRENONE
     Dosage: UNK UNK, UNKNOWN FREQ.
     Route: 065
     Dates: start: 20200921, end: 20201023
  3. CELECOX [Suspect]
     Active Substance: CELECOXIB
     Indication: POST HERPETIC NEURALGIA
     Dosage: UNK UNK, UNKNOWN FREQ.
     Route: 048
     Dates: start: 20201012, end: 20201023
  4. MECOBALAMIN [Concomitant]
     Active Substance: METHYLCOBALAMIN
     Dosage: UNK UNK, UNKNOWN FREQ.
     Route: 065
     Dates: start: 20200921, end: 20201023

REACTIONS (3)
  - Drug eruption [Recovered/Resolved]
  - Erythema multiforme [Recovered/Resolved]
  - Off label use [Unknown]

NARRATIVE: CASE EVENT DATE: 20201012
